FAERS Safety Report 7829393-X (Version None)
Quarter: 2011Q4

REPORT INFORMATION
  Report Type: 
  Country: None (occurrence: None)
  Receive Date: 20111020
  Receipt Date: 20111012
  Transmission Date: 20120403
  Serious: Yes (Hospitalization)
  Sender: FDA-Public Use
  Company Number: US-US-EMD SERONO, INC.-7079666

PATIENT
  Sex: Female

DRUGS (1)
  1. REBIF [Suspect]
     Indication: PRODUCT USED FOR UNKNOWN INDICATION
     Route: 058
     Dates: start: 20110601, end: 20111003

REACTIONS (9)
  - SPEECH DISORDER [None]
  - INJECTION SITE HAEMATOMA [None]
  - INJECTION SITE ULCER [None]
  - PARAESTHESIA [None]
  - VOMITING [None]
  - GAIT DISTURBANCE [None]
  - PAIN [None]
  - INJECTION SITE PAIN [None]
  - INJECTION SITE VESICLES [None]
